FAERS Safety Report 5168185-X (Version None)
Quarter: 2006Q4

REPORT INFORMATION
  Report Type: 
  Country: None (occurrence: None)
  Receive Date: 20061130
  Receipt Date: 20061120
  Transmission Date: 20070319
  Serious: Yes (Other)
  Sender: FDA-Public Use
  Company Number: 2006123651

PATIENT
  Sex: Female
  Weight: 77.1115 kg

DRUGS (11)
  1. ZOLOFT [Suspect]
     Indication: DEPRESSION
  2. ZOLOFT [Suspect]
     Indication: FATIGUE
  3. ZOLOFT [Suspect]
     Indication: HYPOKINESIA
  4. ZOLOFT [Suspect]
     Indication: SERUM SEROTONIN DECREASED
  5. FLEXERIL [Suspect]
     Indication: MUSCLE SPASMS
  6. FLEXERIL [Suspect]
     Indication: MUSCLE TWITCHING
  7. FLEXERIL [Suspect]
     Indication: PAIN
  8. ALEVE [Concomitant]
  9. ZOCOR [Concomitant]
  10. VYTORIN [Concomitant]
  11. DETROL [Concomitant]

REACTIONS (13)
  - CALCINOSIS [None]
  - DECREASED ACTIVITY [None]
  - DRUG INEFFECTIVE [None]
  - EXOSTOSIS [None]
  - FATIGUE [None]
  - MUSCLE SPASMS [None]
  - MUSCLE TIGHTNESS [None]
  - MUSCLE TWITCHING [None]
  - PAIN [None]
  - SLEEP DISORDER [None]
  - SOMNOLENCE [None]
  - STRESS [None]
  - THERAPY NON-RESPONDER [None]
